FAERS Safety Report 5321812-6 (Version None)
Quarter: 2007Q2

REPORT INFORMATION
  Report Type: 
  Country: None (occurrence: None)
  Receive Date: 20070510
  Receipt Date: 20070426
  Transmission Date: 20071010
  Serious: Yes (Hospitalization)
  Sender: FDA-Public Use
  Company Number: JP-PFIZER INC-2007036728

PATIENT
  Age: 60 Year
  Sex: Male

DRUGS (4)
  1. MIGLITOL TABLET [Suspect]
     Indication: DIABETES MELLITUS NON-INSULIN-DEPENDENT
     Dosage: DAILY DOSE:225MG
     Route: 048
  2. GASTER [Concomitant]
     Dosage: DAILY DOSE:20MG
     Route: 048
  3. EUGLUCON [Concomitant]
     Indication: DIABETES MELLITUS NON-INSULIN-DEPENDENT
     Dosage: DAILY DOSE:8.25MG
     Route: 048
  4. TRIMEBUTINE MALEATE [Concomitant]
     Dosage: DAILY DOSE:300MG
     Route: 048

REACTIONS (2)
  - ILEUS [None]
  - VOMITING [None]
